FAERS Safety Report 16132700 (Version 1)
Quarter: 2019Q1

REPORT INFORMATION
  Report Type: Spontaneous
  Country: US (occurrence: US)
  Receive Date: 20190226
  Receipt Date: 20190226
  Transmission Date: 20190418
  Serious: Yes (Other)
  Sender: FDA-Public Use
  Company Number: None

PATIENT
  Age: 20 Year
  Sex: Female
  Weight: 47.63 kg

DRUGS (1)
  1. BUPRENORPHINE NALOXONE TABS 8/2MG [Suspect]
     Active Substance: BUPRENORPHINE\NALOXONE
     Indication: DRUG USE DISORDER
     Dosage: ?          OTHER DOSE:8/2MG;OTHER FREQUENCY:1/2 B/D;?
     Route: 060
     Dates: start: 20190129

REACTIONS (3)
  - Nausea [None]
  - Retching [None]
  - Therapeutic response changed [None]

NARRATIVE: CASE EVENT DATE: 20190129
